FAERS Safety Report 9542164 (Version 2)
Quarter: 2013Q4

REPORT INFORMATION
  Report Type: Spontaneous
  Country: DE (occurrence: DE)
  Receive Date: 20130923
  Receipt Date: 20131115
  Transmission Date: 20140711
  Serious: Yes (Other)
  Sender: FDA-Public Use
  Company Number: DE-ELI_LILLY_AND_COMPANY-DE201309003582

PATIENT
  Age: 69 Year
  Sex: Male

DRUGS (9)
  1. ZYPREXA VELOTAB [Suspect]
     Indication: PARANOIA
     Dosage: 5 MG, QD
     Route: 048
     Dates: start: 20130614, end: 20130625
  2. ZYPREXA VELOTAB [Suspect]
     Dosage: 2.5 MG, QD
     Route: 048
     Dates: start: 20130625, end: 20130722
  3. ZYPREXA VELOTAB [Suspect]
     Dosage: 5 MG, QD
     Route: 048
     Dates: start: 20130722, end: 20130805
  4. GABAPENTIN [Suspect]
     Indication: PRODUCT USED FOR UNKNOWN INDICATION
     Dosage: 600 MG, BID
     Route: 065
  5. TRAMADOL [Concomitant]
     Dosage: 100 MG, UNK
  6. PANTOPRAZOL [Concomitant]
  7. SIMVASTATIN [Concomitant]
  8. ASS [Concomitant]
  9. NOVALGIN                           /06276704/ [Concomitant]
     Dosage: 500 MG, TID

REACTIONS (1)
  - Eosinophil count increased [Recovered/Resolved]
